FAERS Safety Report 26115275 (Version 1)
Quarter: 2025Q4

REPORT INFORMATION
  Report Type: Spontaneous
  Country: US (occurrence: US)
  Receive Date: 20251203
  Receipt Date: 20251203
  Transmission Date: 20260117
  Serious: Yes (Hospitalization)
  Sender: MERCK SHARP & DOHME LLC
  Company Number: US-009507513-2354753

PATIENT
  Age: 88 Year
  Sex: Male

DRUGS (1)
  1. PEMBROLIZUMAB [Suspect]
     Active Substance: PEMBROLIZUMAB
     Indication: Acral lentiginous melanoma stage III

REACTIONS (2)
  - Thyroid disorder [Recovered/Resolved]
  - Decompensated hypothyroidism [Recovered/Resolved]
